FAERS Safety Report 8425963-9 (Version None)
Quarter: 2012Q2

REPORT INFORMATION
  Report Type: 
  Country: None (occurrence: None)
  Receive Date: 20120611
  Receipt Date: 20120606
  Transmission Date: 20120825
  Serious: Yes (Death, Hospitalization, Other)
  Sender: FDA-Public Use
  Company Number: ES-JNJFOC-20091101029

PATIENT
  Sex: Male

DRUGS (4)
  1. VELCADE [Suspect]
     Indication: MULTIPLE MYELOMA
     Dosage: ADMINISTERED FOR 3 DAYS PER CYCLE
     Route: 042
     Dates: start: 20090703, end: 20090829
  2. DEXAMETHASONE [Suspect]
     Dosage: TAKEN ON 4 DAYS OF EACH CYCLE
     Route: 048
     Dates: start: 20090703, end: 20090829
  3. DOXORUBICIN HCL [Suspect]
     Indication: MULTIPLE MYELOMA
     Route: 042
     Dates: start: 20090703, end: 20090829
  4. DEXAMETHASONE [Suspect]
     Indication: MULTIPLE MYELOMA
     Route: 048
     Dates: start: 20090902

REACTIONS (3)
  - TUMOUR LYSIS SYNDROME [None]
  - INFLUENZA [None]
  - MULTIPLE MYELOMA [None]
